FAERS Safety Report 25511905 (Version 2)
Quarter: 2025Q3

REPORT INFORMATION
  Report Type: Spontaneous
  Country: US (occurrence: US)
  Receive Date: 20250703
  Receipt Date: 20250715
  Transmission Date: 20251020
  Serious: Yes (Other)
  Sender: TAIHO ONCOLOGY INC
  Company Number: US-TAIHOP-2025-006957

PATIENT
  Age: 78 Year
  Sex: Male

DRUGS (1)
  1. INQOVI [Suspect]
     Active Substance: CEDAZURIDINE\DECITABINE
     Indication: Myelodysplastic syndrome
     Dosage: 35MG DECITABINE AND 100MG CEDAZURIDINE??1 TABLET ONCE DAILY FOR 5 DAYS OF A 28 DAY CYCLEAY CYCLE
     Route: 048

REACTIONS (6)
  - Platelet transfusion [Unknown]
  - Transfusion [Unknown]
  - Swelling [Not Recovered/Not Resolved]
  - Limb mass [Not Recovered/Not Resolved]
  - Pyrexia [Recovered/Resolved]
  - Fatigue [Unknown]

NARRATIVE: CASE EVENT DATE: 20250702
